FAERS Safety Report 10680651 (Version 2)
Quarter: 2015Q4

REPORT INFORMATION
  Report Type: Spontaneous
  Country: US (occurrence: US)
  Receive Date: 20141229
  Receipt Date: 20151228
  Transmission Date: 20160304
  Serious: Yes (Death, Hospitalization)
  Sender: FDA-Public Use
  Company Number: US-SA-2014SA118770

PATIENT
  Age: 43 Year
  Sex: Male

DRUGS (75)
  1. METOPROLOL [Concomitant]
     Active Substance: METOPROLOL
  2. DILANTIN [Concomitant]
     Active Substance: PHENYTOIN
     Dosage: STRENGTH: 100 MG
  3. OCUFLOX [Concomitant]
     Active Substance: OFLOXACIN
  4. NAPROXEN. [Concomitant]
     Active Substance: NAPROXEN
     Dosage: STRENGTH: 500 MG
  5. GUIATUSS [Concomitant]
     Active Substance: GUAIFENESIN
     Dosage: STRENGTH: 100 MG/5ML
  6. MIRTAZAPINE. [Concomitant]
     Active Substance: MIRTAZAPINE
     Dosage: STRENGTH: 30 MG
  7. GEMFIBROZIL. [Concomitant]
     Active Substance: GEMFIBROZIL
     Dosage: STRENGTH: 600 MG
  8. AMBIEN [Concomitant]
     Active Substance: ZOLPIDEM TARTRATE
     Dosage: STRENGTH; 10 MG
  9. LIDODERM [Concomitant]
     Active Substance: LIDOCAINE
     Dosage: STRENGTH: 5 %; FORM: PATCH
  10. FLUOROMETHOLONE ACETATE [Concomitant]
     Active Substance: FLUOROMETHOLONE ACETATE
     Dosage: STRENGTH: 0.1 %
  11. METHAZOLAMIDE. [Concomitant]
     Active Substance: METHAZOLAMIDE
     Dosage: STRENGTH: 25 MG
  12. CYMBALTA [Concomitant]
     Active Substance: DULOXETINE HYDROCHLORIDE
     Dosage: STRENGTH: 30 MG
  13. BENAZEPRIL HYDROCHLORIDE. [Concomitant]
     Active Substance: BENAZEPRIL HYDROCHLORIDE
     Dosage: STRENGTH: 20 MG
  14. PLAVIX [Suspect]
     Active Substance: CLOPIDOGREL BISULFATE
     Indication: ACUTE CORONARY SYNDROME
     Route: 048
     Dates: start: 20031016, end: 20060903
  15. ETODOLAC. [Concomitant]
     Active Substance: ETODOLAC
     Dosage: STRENGTH: 400 MG
  16. ZYRTEC [Concomitant]
     Active Substance: CETIRIZINE HYDROCHLORIDE
     Dosage: STRENGTH: 10 MG
  17. MURO 128 [Concomitant]
     Active Substance: SODIUM CHLORIDE
     Dosage: STRENGTH: 5 %; EYE DROPS
  18. VIGAMOX [Concomitant]
     Active Substance: MOXIFLOXACIN HYDROCHLORIDE
     Dosage: STRENGTH: 0.5%
  19. PRAVACHOL [Concomitant]
     Active Substance: PRAVASTATIN SODIUM
     Dosage: STRENGTH: 40 MG
  20. NASONEX [Concomitant]
     Active Substance: MOMETASONE FUROATE
     Dosage: FORM: NASAL SPRAY
  21. AMOXICILLIN. [Concomitant]
     Active Substance: AMOXICILLIN
     Dosage: STRENGTH: 500 MG
  22. KETOROLAC [Concomitant]
     Active Substance: KETOROLAC\KETOROLAC TROMETHAMINE
     Dosage: STRENGTH: 0.5 %
  23. METRONIDAZOLE. [Concomitant]
     Active Substance: METRONIDAZOLE
     Dosage: STRENGTH: 500 MG
  24. NITROTAB [Concomitant]
     Dosage: STRENGTH: 0.4 MG
  25. CEPHALEXIN. [Concomitant]
     Active Substance: CEPHALEXIN
     Dosage: STRENGTH: 500 MG
  26. ACETAZOLAMIDE. [Concomitant]
     Active Substance: ACETAZOLAMIDE
     Dosage: STRENGTH: 250 MG
  27. ROZEREM [Concomitant]
     Active Substance: RAMELTEON
     Dosage: STRENGTH: 8 MG
  28. ASPIRIN. [Concomitant]
     Active Substance: ASPIRIN
     Dosage: STRENGTH: 81 MG
  29. ALTACE [Concomitant]
     Active Substance: RAMIPRIL
     Dosage: STRENGTH: 2.5 MG
  30. TRILEPTAL [Concomitant]
     Active Substance: OXCARBAZEPINE
     Dosage: STRENGTH: 300 MG
  31. NITROQUICK [Concomitant]
     Active Substance: NITROGLYCERIN
     Dosage: STRENGTH: 0.4 MG
  32. VIOXX [Concomitant]
     Active Substance: ROFECOXIB
  33. ZOCOR [Concomitant]
     Active Substance: SIMVASTATIN
     Dosage: STRENGTH: 40 MG
  34. PREDNISOLONE. [Concomitant]
     Active Substance: PREDNISOLONE
     Dosage: STRENGTH: AC 1%
  35. LOTEMAX [Concomitant]
     Active Substance: LOTEPREDNOL ETABONATE
     Dosage: STRENGTH: 0.5 %
  36. HOMATROPINE [Concomitant]
     Active Substance: HOMATROPINE\HOMATROPINE HYDROBROMIDE
     Dosage: STRENGTH: 5 %
  37. LORATADINE. [Concomitant]
     Active Substance: LORATADINE
     Dosage: STRENGTH: 10 MG
  38. SODIUM CHLORIDE. [Concomitant]
     Active Substance: SODIUM CHLORIDE
     Dosage: STRENGTH: 5 %
  39. GATIFLOXACIN. [Concomitant]
     Active Substance: GATIFLOXACIN
     Dosage: STRENGTH: 0.3 %
  40. PROTONIX [Concomitant]
     Active Substance: PANTOPRAZOLE SODIUM
     Dosage: STRENGTH: 40 MG
  41. LISINOPRIL. [Concomitant]
     Active Substance: LISINOPRIL
     Dosage: STRENGTH: 10 MG
  42. TRAZODONE [Concomitant]
     Active Substance: TRAZODONE HYDROCHLORIDE
     Dosage: STRENGTH: 50 MG
  43. TOBRADEX [Concomitant]
     Active Substance: DEXAMETHASONE\TOBRAMYCIN
  44. TIMOLOL. [Concomitant]
     Active Substance: TIMOLOL
     Dosage: FORM: EYE DROPS; STRENGTH: 5 %
  45. OXYCODONE [Concomitant]
     Active Substance: OXYCODONE
  46. ALPHAGAN P [Concomitant]
     Active Substance: BRIMONIDINE TARTRATE
  47. ALLEGRA [Concomitant]
     Active Substance: FEXOFENADINE HYDROCHLORIDE
     Dosage: STRENGTH: 60 MG
  48. ZOLOFT [Concomitant]
     Active Substance: SERTRALINE HYDROCHLORIDE
     Dosage: STRENGTH: 50 MG
  49. EFFEXOR [Concomitant]
     Active Substance: VENLAFAXINE HYDROCHLORIDE
     Dosage: STRENGTH: 75 MG
  50. ADVICOR [Concomitant]
     Active Substance: LOVASTATIN\NIACIN
     Dosage: STRENGTH: 500 MG/20 MG
  51. XALATAN [Concomitant]
     Active Substance: LATANOPROST
     Dosage: STRENGTH; 0.005 %
  52. FLUOROMETHOLONE. [Concomitant]
     Active Substance: FLUOROMETHOLONE
     Dosage: STRENGTH: 0.1 % FORM: DROPS
  53. PRED FORTE [Concomitant]
     Active Substance: PREDNISOLONE ACETATE
     Dosage: STRENGTH: 1 %
  54. SYMBYAX [Concomitant]
     Active Substance: FLUOXETINE HYDROCHLORIDE\OLANZAPINE
     Dosage: STRENGTH: 6-25 MG
  55. XANAX [Concomitant]
     Active Substance: ALPRAZOLAM
     Dosage: STRENGTH: 0.5 MG
  56. ZITHROMAX [Concomitant]
     Active Substance: AZITHROMYCIN DIHYDRATE
     Dosage: STRENGTH: 250 MG
  57. ATENOLOL. [Concomitant]
     Active Substance: ATENOLOL
     Dosage: STRENGTH: 25 MG
  58. TRAVATAN [Concomitant]
     Active Substance: TRAVOPROST
     Dosage: STRENGTH: 0.5 %
  59. FEXOFENADINE HYDROCHLORIDE/PSEUDOEPHEDRINE HYDROCHLORIDE [Concomitant]
  60. ULTRACET [Concomitant]
     Active Substance: ACETAMINOPHEN\TRAMADOL HYDROCHLORIDE
  61. HYDROCODONE BITARTRATE AND ACETAMINOPHEN [Concomitant]
     Active Substance: ACETAMINOPHEN\HYDROCODONE BITARTRATE
     Dosage: STRENGTH: 10/500
  62. CARAFATE [Concomitant]
     Active Substance: SUCRALFATE
     Dosage: STRENGTH: 1GM/10 ML
  63. COREG [Concomitant]
     Active Substance: CARVEDILOL
     Dosage: STRENGTH: 12.5 MG
  64. PLAVIX [Suspect]
     Active Substance: CLOPIDOGREL BISULFATE
     Indication: STENT PLACEMENT
     Route: 048
     Dates: start: 20031016, end: 20060903
  65. CELEBREX [Concomitant]
     Active Substance: CELECOXIB
     Dosage: STRENGTH: 200 MG
  66. ETODOLAC. [Concomitant]
     Active Substance: ETODOLAC
     Dosage: STRENGTH: 400 MG
  67. CILOXAN [Concomitant]
     Active Substance: CIPROFLOXACIN HYDROCHLORIDE
     Dosage: STRENGTH: 0.3 %
  68. MEPERIDINE W/PROMETHAZINE [Concomitant]
  69. FML LIQUIFILM [Concomitant]
     Dosage: STRENGTH: 0.1 %
  70. PAROXETINE HYDROCHLORIDE. [Concomitant]
     Active Substance: PAROXETINE HYDROCHLORIDE
     Dosage: STRENGTH: 30 MG
  71. TRAMADOL HYDROCHLORIDE. [Concomitant]
     Active Substance: TRAMADOL HYDROCHLORIDE
     Dosage: STRENGTH: 50 MG
  72. PAXIL CR [Concomitant]
     Active Substance: PAROXETINE HYDROCHLORIDE
     Dosage: STRENGTH: 12.5 MG
  73. ALPHAGAN P [Concomitant]
     Active Substance: BRIMONIDINE TARTRATE
     Dosage: STRENGTH: 0.15%
  74. CHOLINE [Concomitant]
     Active Substance: CHOLINE
     Dosage: STRENGTH: 500 MG
  75. CRESTOR [Concomitant]
     Active Substance: ROSUVASTATIN CALCIUM
     Dosage: STRENGTH: 10 MG

REACTIONS (1)
  - Gastrointestinal haemorrhage [Unknown]

NARRATIVE: CASE EVENT DATE: 20060124
